FAERS Safety Report 8941627 (Version 1)
Quarter: 2012Q4

REPORT INFORMATION
  Report Type: Report from Study
  Country: US (occurrence: US)
  Receive Date: 20121203
  Receipt Date: 20121203
  Transmission Date: 20130627
  Serious: Yes (Hospitalization)
  Sender: FDA-Public Use
  Company Number: US-ROCHE-1160370

PATIENT
  Age: 61 Year
  Sex: Female

DRUGS (5)
  1. PEG-INTERFERON ALFA 2A [Suspect]
     Indication: HEPATITIS C
     Route: 065
     Dates: start: 20120626
  2. RIBAVIRIN [Suspect]
     Indication: HEPATITIS C
     Route: 065
     Dates: start: 20120626
  3. BMS-791325 [Suspect]
     Indication: HEPATITIS C
     Route: 048
     Dates: start: 20120424, end: 20121012
  4. ASUNAPREVIR [Suspect]
     Indication: HEPATITIS C
     Route: 048
     Dates: start: 20120424, end: 20121012
  5. DACLATASVIR [Suspect]
     Indication: HEPATITIS C
     Route: 048
     Dates: start: 20120424, end: 20121012

REACTIONS (2)
  - Cerebral vasoconstriction [Not Recovered/Not Resolved]
  - Meningorrhagia [None]
